FAERS Safety Report 9103901 (Version 1)
Quarter: 2013Q1

REPORT INFORMATION
  Report Type: Spontaneous
  Country: SE (occurrence: SE)
  Receive Date: 20130219
  Receipt Date: 20130219
  Transmission Date: 20140127
  Serious: Yes (Hospitalization)
  Sender: FDA-Public Use
  Company Number: SE-SANOFI-AVENTIS-2013SA013483

PATIENT
  Age: 71 Year
  Sex: Male

DRUGS (4)
  1. XATRAL OD [Suspect]
     Indication: BENIGN PROSTATIC HYPERPLASIA
     Route: 048
     Dates: start: 201301
  2. FINASTERIDE [Suspect]
     Indication: PRODUCT USED FOR UNKNOWN INDICATION
     Route: 065
     Dates: start: 201301
  3. CELLCEPT [Concomitant]
  4. SANDIMMUN [Concomitant]

REACTIONS (1)
  - Neutropenia [Not Recovered/Not Resolved]
